FAERS Safety Report 8186588-6 (Version None)
Quarter: 2012Q1

REPORT INFORMATION
  Report Type: 
  Country: None (occurrence: None)
  Receive Date: 20120302
  Receipt Date: 20120302
  Transmission Date: 20120608
  Serious: Yes (Life-Threatening, Hospitalization)
  Sender: FDA-Public Use
  Company Number: None

PATIENT
  Age: 62 Year
  Sex: Male
  Weight: 86.5 kg

DRUGS (1)
  1. ISOSORBIDE DINITRATE [Suspect]
     Indication: HYPERTENSION
     Dosage: 40 MG TID PO
     Route: 048
     Dates: start: 20120110, end: 20120119

REACTIONS (4)
  - HYPOTENSION [None]
  - MALAISE [None]
  - TROPONIN INCREASED [None]
  - MEDICATION ERROR [None]
